FAERS Safety Report 7001465-1 (Version None)
Quarter: 2010Q3

REPORT INFORMATION
  Report Type: 
  Country: None (occurrence: None)
  Receive Date: 20100920
  Receipt Date: 20100622
  Transmission Date: 20110219
  Serious: No
  Sender: FDA-Public Use
  Company Number: US-ASTRAZENECA-2010SE29186

PATIENT
  Age: 63 Year
  Sex: Female
  Weight: 63.5 kg

DRUGS (6)
  1. SEROQUEL [Suspect]
     Indication: INSOMNIA
     Dosage: 25 MG,1- 3 TABLETS AT NIGHT AS NEEDED
     Route: 048
     Dates: start: 20100608
  2. LEXAPRO [Concomitant]
  3. LEVOXYL [Concomitant]
  4. LYMICTAL [Concomitant]
  5. NEURONTIN [Concomitant]
  6. ATIVAN [Concomitant]

REACTIONS (1)
  - ALOPECIA [None]
